FAERS Safety Report 10877580 (Version 1)
Quarter: 2015Q1

REPORT INFORMATION
  Report Type: Spontaneous
  Country: US (occurrence: US)
  Receive Date: 20150302
  Receipt Date: 20150302
  Transmission Date: 20150721
  Serious: Yes (Hospitalization)
  Sender: FDA-Public Use
  Company Number: US-CIPLA LTD.-2015US01516

PATIENT
  Age: 42 Year
  Sex: Female

DRUGS (3)
  1. CLONAZEPAM. [Suspect]
     Active Substance: CLONAZEPAM
     Dosage: OVERDOSE
  2. CITALOPRAM [Suspect]
     Active Substance: CITALOPRAM HYDROBROMIDE
     Dosage: GREATER THAN 2000 MG IN INTENTIONAL OVERDOSE
  3. TEMAZEPAM. [Suspect]
     Active Substance: TEMAZEPAM
     Dosage: OVERDOSE

REACTIONS (4)
  - Arrhythmia [Unknown]
  - Overdose [Unknown]
  - Serotonin syndrome [Recovered/Resolved]
  - Electrocardiogram QT prolonged [Unknown]
